FAERS Safety Report 5404373-2 (Version None)
Quarter: 2007Q3

REPORT INFORMATION
  Report Type: 
  Country: None (occurrence: None)
  Receive Date: 20070802
  Receipt Date: 20070726
  Transmission Date: 20080115
  Serious: Yes (Hospitalization)
  Sender: FDA-Public Use
  Company Number: JP-PFIZER INC-2007054866

PATIENT
  Age: 16 Year
  Sex: Male

DRUGS (2)
  1. GENOTROPIN [Suspect]
     Indication: BODY HEIGHT BELOW NORMAL
     Dosage: DAILY DOSE:1.2MG
     Route: 058
  2. GENOTROPIN [Suspect]
     Dosage: DAILY DOSE:2MG
     Route: 058

REACTIONS (2)
  - CALCULUS URINARY [None]
  - PYELONEPHRITIS [None]
